FAERS Safety Report 6371467-7 (Version None)
Quarter: 2009Q3

REPORT INFORMATION
  Report Type: 
  Country: None (occurrence: None)
  Receive Date: 20090923
  Receipt Date: 20080516
  Transmission Date: 20100115
  Serious: No
  Sender: FDA-Public Use
  Company Number: US-ASTRAZENECA-2007UW10885

PATIENT
  Age: 536 Month
  Sex: Female
  Weight: 90.7 kg

DRUGS (74)
  1. SEROQUEL [Suspect]
     Indication: BIPOLAR DISORDER
     Dosage: 25-800 MG
     Route: 048
     Dates: start: 20030301
  2. SEROQUEL [Suspect]
     Indication: DEPRESSION
     Dosage: 25-800 MG
     Route: 048
     Dates: start: 20030301
  3. SEROQUEL [Suspect]
     Dosage: 25 MG-400 MG
     Route: 048
     Dates: start: 20040507
  4. SEROQUEL [Suspect]
     Dosage: 25 MG-400 MG
     Route: 048
     Dates: start: 20040507
  5. OLANZAPINE [Concomitant]
     Route: 065
     Dates: start: 20010701
  6. RISPERIDONE [Concomitant]
     Route: 065
     Dates: start: 20050401
  7. CLOZARIL [Concomitant]
     Route: 065
     Dates: start: 20010501
  8. GEODON [Concomitant]
     Route: 065
     Dates: start: 20010501
  9. GEODON [Concomitant]
     Route: 065
  10. HALDOL [Concomitant]
     Route: 065
     Dates: start: 20040901
  11. CYMBALTA [Concomitant]
     Dosage: 30 MG TO 60 MG
     Route: 065
  12. CYMBALTA [Concomitant]
     Route: 065
  13. WELLBUTRIN XL [Concomitant]
     Route: 065
  14. WELLBUTRIN XL [Concomitant]
     Dosage: 150-300 MG
     Route: 065
  15. DEPAKOTE [Concomitant]
     Dosage: 1-3 TIMES A DAY
     Route: 065
  16. NEURONTIN [Concomitant]
     Dosage: 1-3 TIMES A DAY
     Route: 065
  17. NEURONTIN [Concomitant]
     Dosage: 300-800 MG
     Route: 065
  18. CELEXA [Concomitant]
     Route: 065
  19. TRAZODONE HCL [Concomitant]
     Route: 065
  20. AMITRIPTYLINE [Concomitant]
     Dosage: 25 MG TO 100 MG
     Route: 065
  21. GABAPENTON [Concomitant]
     Route: 065
  22. GABAPENTON [Concomitant]
     Dosage: 300-400 MG
     Route: 065
  23. CONCERTA [Concomitant]
     Route: 065
  24. CONCERTA [Concomitant]
     Route: 065
  25. TOPAMAX [Concomitant]
     Route: 065
  26. CARBATROL [Concomitant]
     Route: 065
  27. TRILEPTAL [Concomitant]
     Route: 065
  28. CLONIDINE [Concomitant]
     Route: 065
  29. PREMARIN [Concomitant]
     Route: 065
  30. HYDROCHLOROTHIAZIDE [Concomitant]
     Dosage: 12.5-50 MG
     Route: 065
  31. PROTONIX [Concomitant]
     Route: 065
  32. DICLOFENAC SODIUM [Concomitant]
     Route: 065
  33. FEXOFENADINE [Concomitant]
     Route: 065
  34. LACTULOSE [Concomitant]
     Route: 065
  35. HYDROCORTISONE A [Concomitant]
     Route: 065
  36. CLONAZEPAM [Concomitant]
     Dosage: 0.5-1 MG
     Route: 065
  37. METOCLOPRAMIDE H [Concomitant]
     Route: 065
  38. ALPRAZOLAM [Concomitant]
     Route: 065
  39. ACETAMINOPHEN [Concomitant]
     Route: 065
  40. PROMETHAZINE [Concomitant]
     Route: 065
  41. LOPERAMIDE HCL [Concomitant]
     Route: 065
  42. LEVAQUIN [Concomitant]
     Route: 065
  43. NAPROXEN [Concomitant]
     Route: 065
  44. HYDROXYZINE HCL [Concomitant]
     Route: 065
  45. PANNAZ [Concomitant]
     Route: 065
  46. CYCLOBENZAPRINE [Concomitant]
     Route: 065
  47. GLYCOLAX [Concomitant]
     Route: 065
  48. NITROFURANTOIN [Concomitant]
     Route: 065
  49. NEXIUM [Concomitant]
     Route: 065
  50. BACLOFEN [Concomitant]
     Route: 065
  51. MUCINEX [Concomitant]
     Route: 065
  52. PROPOXY/APAP [Concomitant]
     Dosage: 100/650
     Route: 065
  53. DETROL LA [Concomitant]
     Route: 065
  54. DICYCLOMINE SOD [Concomitant]
     Route: 065
  55. BEXTRA [Concomitant]
     Route: 065
  56. DIAZEPAM [Concomitant]
     Dosage: 5-10 MG
     Route: 065
  57. CIPROFLAXACIN [Concomitant]
     Route: 065
  58. STRATTERA [Concomitant]
     Route: 065
  59. HYDROCODONE BITARTRATE AND ACETAMINOPHEN [Concomitant]
     Route: 065
  60. LIDOCAINE [Concomitant]
     Route: 065
  61. METHYLPREDNISOLONE 4MG TAB [Concomitant]
     Route: 065
  62. SONATA [Concomitant]
     Dosage: 5-10 MG
     Route: 065
  63. PAXIL CR [Concomitant]
     Route: 065
  64. NORTRIPTYLINE HCL [Concomitant]
     Route: 065
  65. TIZANIDINE HCL [Concomitant]
     Route: 065
  66. LISINOPRIL AND HYDROCHLOROTHIAZIDE [Concomitant]
     Route: 065
  67. OXCARBAZEPINE [Concomitant]
     Route: 065
  68. METFORMIN HCL [Concomitant]
     Route: 065
  69. BYETTA [Concomitant]
     Route: 065
  70. ESTRADIOL [Concomitant]
     Route: 065
  71. FORADIL AIROLIZER [Concomitant]
     Route: 065
  72. PREVACID [Concomitant]
     Route: 065
  73. NABUMETONE [Concomitant]
     Route: 065
  74. BENZONATATE [Concomitant]
     Route: 065

REACTIONS (4)
  - BLOOD CHOLESTEROL INCREASED [None]
  - BLOOD TRIGLYCERIDES INCREASED [None]
  - OBESITY [None]
  - TYPE 2 DIABETES MELLITUS [None]
